FAERS Safety Report 11156258 (Version 1)
Quarter: 2015Q2

REPORT INFORMATION
  Report Type: Report from Study
  Country: US (occurrence: US)
  Receive Date: 20150602
  Receipt Date: 20150602
  Transmission Date: 20150821
  Serious: Yes (Hospitalization)
  Sender: FDA-Public Use
  Company Number: US-SA-2015SA074802

PATIENT
  Age: 57 Year
  Sex: Male

DRUGS (1)
  1. RENVELA [Suspect]
     Active Substance: SEVELAMER CARBONATE
     Indication: HYPERPHOSPHATAEMIA
     Dosage: DOSE: 2400 MG THREE TIMES A DAY
     Route: 048

REACTIONS (3)
  - Malaise [Unknown]
  - Infection [Unknown]
  - Decreased appetite [Unknown]
